FAERS Safety Report 5961050-7 (Version None)
Quarter: 2008Q4

REPORT INFORMATION
  Report Type: 
  Country: None (occurrence: None)
  Receive Date: 20081121
  Receipt Date: 20081114
  Transmission Date: 20090506
  Serious: Yes (Other)
  Sender: FDA-Public Use
  Company Number: US-BAYER-200838838NA

PATIENT
  Age: 68 Year
  Sex: Male

DRUGS (1)
  1. LEVITRA [Suspect]
     Indication: ERECTILE DYSFUNCTION
     Dates: start: 20081114

REACTIONS (3)
  - COUGH [None]
  - DYSPNOEA [None]
  - PHARYNGEAL OEDEMA [None]
